FAERS Safety Report 11796019 (Version 1)
Quarter: 2015Q4

REPORT INFORMATION
  Report Type: Other
  Country: RU (occurrence: RU)
  Receive Date: 20151203
  Receipt Date: 20151203
  Transmission Date: 20160305
  Serious: Yes (Death)
  Sender: FDA-Public Use
  Company Number: RU-LUPIN PHARMACEUTICALS INC.-2015-03864

PATIENT
  Age: 35 Year
  Sex: Female

DRUGS (6)
  1. MEROPENEM. [Suspect]
     Active Substance: MEROPENEM
     Indication: MENINGITIS ASEPTIC
     Route: 065
  2. CEFEPIME [Suspect]
     Active Substance: CEFEPIME HYDROCHLORIDE
     Indication: MENINGITIS ASEPTIC
     Route: 065
  3. CIPROFLOXACIN. [Suspect]
     Active Substance: CIPROFLOXACIN
     Indication: MENINGITIS ASEPTIC
     Route: 065
  4. CEFTRIAXONE. [Suspect]
     Active Substance: CEFTRIAXONE
     Indication: MENINGITIS ASEPTIC
     Route: 065
  5. VANCOMYCIN [Suspect]
     Active Substance: VANCOMYCIN
     Indication: MENINGITIS ASEPTIC
     Route: 042
     Dates: start: 20130301, end: 20130307
  6. VANCOMYCIN [Suspect]
     Active Substance: VANCOMYCIN
     Route: 042

REACTIONS (1)
  - Pseudomembranous colitis [Fatal]
